FAERS Safety Report 23844245 (Version 2)
Quarter: 2024Q2

REPORT INFORMATION
  Report Type: Spontaneous
  Country: RO (occurrence: RO)
  Receive Date: 20240510
  Receipt Date: 20240529
  Transmission Date: 20240716
  Serious: Yes (Other)
  Sender: FDA-Public Use
  Company Number: RO-ANIPHARMA-2024-RO-000007

PATIENT
  Age: 51 Year
  Sex: Female

DRUGS (9)
  1. ANASTROZOLE [Suspect]
     Active Substance: ANASTROZOLE
     Indication: Bone neoplasm
     Dosage: 1 MG DAILY
     Dates: start: 201910, end: 202310
  2. FULVESTRANT [Suspect]
     Active Substance: FULVESTRANT
     Dates: start: 202310, end: 202402
  3. PALBOCICLIB [Suspect]
     Active Substance: PALBOCICLIB
     Dosage: DOSE TEXT: 125 MG 21 DAYS
     Dates: start: 201910
  4. DENOSUMAB [Suspect]
     Active Substance: DENOSUMAB
     Dosage: 120 MG UNK
     Route: 058
     Dates: start: 202310, end: 202402
  5. ZOLEDRONIC ACID [Suspect]
     Active Substance: ZOLEDRONIC ACID
     Dosage: 4 MG UNK
     Route: 042
  6. LETROZOLE [Suspect]
     Active Substance: LETROZOLE
     Dates: start: 2022
  7. TAMOXIFEN [Suspect]
     Active Substance: TAMOXIFEN
     Dates: start: 2022
  8. VINORELBINE [Suspect]
     Active Substance: VINORELBINE TARTRATE
     Dates: start: 2022
  9. DOXORUBICIN [Suspect]
     Active Substance: DOXORUBICIN
     Dates: start: 2022

REACTIONS (8)
  - Bone pain [Unknown]
  - Lymphadenopathy mediastinal [Unknown]
  - Carbohydrate antigen 15-3 increased [Unknown]
  - Hepatic cancer [Unknown]
  - Metastases to bone [Unknown]
  - Pulmonary mass [Unknown]
  - Bone lesion [Unknown]
  - Breast mass [Unknown]

NARRATIVE: CASE EVENT DATE: 20230101
